FAERS Safety Report 4554713-1 (Version None)
Quarter: 2004Q4

REPORT INFORMATION
  Report Type: 
  Country: None (occurrence: None)
  Receive Date: 20041227
  Receipt Date: 20040920
  Transmission Date: 20050328
  Serious: No
  Sender: FDA-Public Use
  Company Number: US092091

PATIENT
  Age: 40 Year
  Sex: Male
  Weight: 85 kg

DRUGS (7)
  1. SENSIPAR [Suspect]
     Indication: HYPERPARATHYROIDISM SECONDARY
     Dosage: 30 MG, 1 IN 1 DAYS, PO
     Route: 048
     Dates: start: 20040713
  2. PARICALCITOL [Concomitant]
  3. ATENOLOL [Concomitant]
  4. LORAZEPAM [Concomitant]
  5. NEPHRO-VITE [Concomitant]
  6. ACETYLSALICYLIC ACID SRT [Concomitant]
  7. SEVELAMER HCL [Concomitant]

REACTIONS (4)
  - ABDOMINAL DISTENSION [None]
  - BLOOD PRESSURE INCREASED [None]
  - DIZZINESS [None]
  - PALPITATIONS [None]
